FAERS Safety Report 15094388 (Version 1)
Quarter: 2018Q2

REPORT INFORMATION
  Report Type: Spontaneous
  Country: US (occurrence: US)
  Receive Date: 20180630
  Receipt Date: 20180630
  Transmission Date: 20180711
  Serious: No
  Sender: FDA-Public Use
  Company Number: US-TEVA-2018-US-918098

PATIENT
  Age: 48 Year
  Sex: Female

DRUGS (1)
  1. MOISTUREL [Suspect]
     Active Substance: DIMETHICONE
     Indication: RASH
     Route: 065
     Dates: start: 201801

REACTIONS (3)
  - Pruritus [Unknown]
  - Drug ineffective [Unknown]
  - Product adhesion issue [Unknown]

NARRATIVE: CASE EVENT DATE: 201801
